FAERS Safety Report 12436167 (Version 1)
Quarter: 2016Q2

REPORT INFORMATION
  Report Type: Spontaneous
  Country: GB (occurrence: GB)
  Receive Date: 20160605
  Receipt Date: 20160605
  Transmission Date: 20160815
  Serious: Yes (Other)
  Sender: FDA-Public Use
  Company Number: GB-TEVA-664318ACC

PATIENT
  Age: 48 Year
  Sex: Female
  Weight: 90.71 kg

DRUGS (1)
  1. TRIMETHOPRIM. [Suspect]
     Active Substance: TRIMETHOPRIM
     Indication: URINARY TRACT INFECTION
     Route: 048

REACTIONS (3)
  - Swollen tongue [Recovered/Resolved]
  - Plicated tongue [Recovered/Resolved]
  - Infective glossitis [Unknown]
